FAERS Safety Report 7885216-4 (Version None)
Quarter: 2011Q4

REPORT INFORMATION
  Report Type: 
  Country: None (occurrence: None)
  Receive Date: 20111102
  Receipt Date: 20111025
  Transmission Date: 20120403
  Serious: Yes (Other)
  Sender: FDA-Public Use
  Company Number: PHEH2011US07846

PATIENT
  Age: 38 Year
  Sex: Female

DRUGS (1)
  1. LETROZOLE [Suspect]
     Indication: BREAST CANCER
     Route: 065

REACTIONS (2)
  - NAUSEA [None]
  - NEUROPATHY PERIPHERAL [None]
